FAERS Safety Report 4280188-6 (Version None)
Quarter: 2004Q1

REPORT INFORMATION
  Report Type: 
  Country: None (occurrence: None)
  Receive Date: 20040128
  Receipt Date: 20040109
  Transmission Date: 20041129
  Serious: Yes (Hospitalization)
  Sender: FDA-Public Use
  Company Number: JP-GLAXOSMITHKLINE-B0319552A

PATIENT
  Age: 1 Year
  Sex: Female
  Weight: 11 kg

DRUGS (6)
  1. CEFTAZIDIME SODIUM [Suspect]
     Indication: PYREXIA
     Dosage: 900MG PER DAY
     Route: 042
     Dates: start: 20031119, end: 20031123
  2. PIPERACILLIN SODIUM [Suspect]
     Indication: PYREXIA
     Dosage: 900MG PER DAY
     Route: 042
     Dates: start: 20031119, end: 20031123
  3. CEFOTIAM HYDROCHLORIDE [Concomitant]
     Indication: PYREXIA
  4. AMPICILLIN SODIUM [Concomitant]
     Indication: PYREXIA
     Dates: start: 20031123
  5. GENTAMICIN SULFATE [Concomitant]
     Indication: PYREXIA
     Dates: start: 20031123
  6. CEFETAMET PIVOXIL [Concomitant]
     Indication: PYREXIA

REACTIONS (5)
  - BACTERIAL INFECTION [None]
  - BLOOD CULTURE POSITIVE [None]
  - C-REACTIVE PROTEIN INCREASED [None]
  - CONDITION AGGRAVATED [None]
  - PYREXIA [None]
